FAERS Safety Report 19998401 (Version 1)
Quarter: 2021Q4

REPORT INFORMATION
  Report Type: Spontaneous
  Country: US (occurrence: US)
  Receive Date: 20211027
  Receipt Date: 20211027
  Transmission Date: 20220303
  Serious: No
  Sender: FDA-Public Use
  Company Number: US-DRREDDYS-SPO/USA/21/0142761

PATIENT
  Age: 19 Year
  Sex: Female

DRUGS (2)
  1. ZENATANE [Suspect]
     Active Substance: ISOTRETINOIN
     Indication: Product used for unknown indication
     Dosage: RMA ISSUE DATE: 12 APRIL 2021 2:52:27 PM,19 JUNE 2021 12:16:04 PM,16 JULY 2021 7:32:33 PM,14 AUGUST
  2. ZENATANE [Suspect]
     Active Substance: ISOTRETINOIN
     Dosage: RMA ISSUE DATE:17 JULY 2021 10:26:00 AM,14 AUGUST 2021 11:46:03 AM ,10 SEPTEMBER 2021 9:17:02 PM

REACTIONS (1)
  - Treatment noncompliance [Unknown]
